FAERS Safety Report 6735317-9 (Version None)
Quarter: 2010Q2

REPORT INFORMATION
  Report Type: 
  Country: None (occurrence: None)
  Receive Date: 20100521
  Receipt Date: 20100513
  Transmission Date: 20101027
  Serious: Yes (Death)
  Sender: FDA-Public Use
  Company Number: US-TEVA-234477USA

PATIENT
  Sex: Female

DRUGS (1)
  1. FLUOXETINE CAPSULE 10MG,20MG [Suspect]
     Indication: MAJOR DEPRESSION

REACTIONS (1)
  - DRUG TOXICITY [None]
